FAERS Safety Report 24160100 (Version 1)
Quarter: 2024Q3

REPORT INFORMATION
  Report Type: Spontaneous
  Country: US (occurrence: US)
  Receive Date: 20240801
  Receipt Date: 20240801
  Transmission Date: 20241016
  Serious: Yes (Hospitalization, Other)
  Sender: Steriscience PTE
  Company Number: US-STERISCIENCE B.V.-2024-ST-001109

PATIENT
  Age: 18 Year
  Sex: Female

DRUGS (4)
  1. LABETALOL [Suspect]
     Active Substance: LABETALOL\LABETALOL HYDROCHLORIDE
     Indication: Pre-eclampsia
     Dosage: HIGH-DOSE PUSHES
     Route: 065
  2. MAGNESIUM [Suspect]
     Active Substance: MAGNESIUM
     Indication: Pre-eclampsia
     Dosage: UNK
     Route: 042
  3. HYDRALAZINE [Suspect]
     Active Substance: HYDRALAZINE HYDROCHLORIDE
     Indication: Pre-eclampsia
     Dosage: HIGH-DOSE PUSHES
     Route: 065
  4. NICARDIPINE [Suspect]
     Active Substance: NICARDIPINE
     Indication: Pre-eclampsia
     Dosage: INFUSION
     Route: 065

REACTIONS (2)
  - Multiple organ dysfunction syndrome [Unknown]
  - Drug ineffective for unapproved indication [Unknown]
